FAERS Safety Report 13194928 (Version 3)
Quarter: 2017Q1

REPORT INFORMATION
  Report Type: Spontaneous
  Country: IE (occurrence: IE)
  Receive Date: 20170207
  Receipt Date: 20170325
  Transmission Date: 20170428
  Serious: Yes (Other)
  Sender: FDA-Public Use
  Company Number: IE-AMGEN-IRLSP2017020197

PATIENT
  Age: 59 Year
  Sex: Male

DRUGS (2)
  1. ENBREL [Suspect]
     Active Substance: ETANERCEPT
     Indication: ANKYLOSING SPONDYLITIS
     Dosage: UNK UNK, WEEKLY(ONCE A WEEK)
     Route: 065
     Dates: start: 2014
  2. ENBREL [Suspect]
     Active Substance: ETANERCEPT
     Dosage: UNK (ONCE VERY TWO WEEKS)
     Route: 065

REACTIONS (12)
  - Abdominal distension [Recovered/Resolved]
  - Peripheral swelling [Recovered/Resolved]
  - Weight decreased [Unknown]
  - Ankylosing spondylitis [Unknown]
  - Dry eye [Recovered/Resolved]
  - Fatigue [Recovered/Resolved]
  - Condition aggravated [Unknown]
  - Pruritus [Recovered/Resolved]
  - Dysphagia [Unknown]
  - Drug ineffective [Unknown]
  - Urticaria [Unknown]
  - Prescribed underdose [Unknown]
